FAERS Safety Report 16942187 (Version 4)
Quarter: 2020Q3

REPORT INFORMATION
  Report Type: Spontaneous
  Country: US (occurrence: US)
  Receive Date: 20191021
  Receipt Date: 20200831
  Transmission Date: 20201102
  Serious: No
  Sender: FDA-Public Use
  Company Number: US-BEH-2019108289

PATIENT
  Age: 10 Year
  Sex: Male
  Weight: 47.17 kg

DRUGS (4)
  1. HIZENTRA [Suspect]
     Active Substance: HUMAN IMMUNOGLOBULIN G
     Indication: IMMUNODEFICIENCY COMMON VARIABLE
     Dosage: 10 GRAM, QOW
     Route: 058
     Dates: start: 20190216
  2. HIZENTRA [Suspect]
     Active Substance: HUMAN IMMUNOGLOBULIN G
     Dosage: UNK
     Route: 058
     Dates: start: 20200823
  3. HIZENTRA [Suspect]
     Active Substance: HUMAN IMMUNOGLOBULIN G
     Indication: PRIMARY IMMUNODEFICIENCY SYNDROME
     Dosage: 10 GRAM, BIW
     Route: 058
     Dates: start: 2018
  4. HIZENTRA [Suspect]
     Active Substance: HUMAN IMMUNOGLOBULIN G
     Dosage: UNK
     Route: 058
     Dates: start: 20200809

REACTIONS (10)
  - Infusion site extravasation [Recovered/Resolved]
  - Weight increased [Recovering/Resolving]
  - Sinus disorder [Recovering/Resolving]
  - Infusion site bruising [Recovering/Resolving]
  - Injection site bruising [Recovering/Resolving]
  - Infusion site discomfort [Recovering/Resolving]
  - Infusion site extravasation [Recovered/Resolved]
  - Injection site haemorrhage [Recovering/Resolving]
  - Incorrect drug administration rate [Recovered/Resolved]
  - Infusion site extravasation [Recovered/Resolved]

NARRATIVE: CASE EVENT DATE: 2018
